FAERS Safety Report 23723811 (Version 1)
Quarter: 2024Q2

REPORT INFORMATION
  Report Type: Spontaneous
  Country: CN (occurrence: None)
  Receive Date: 20240409
  Receipt Date: 20240409
  Transmission Date: 20240716
  Serious: Yes (Hospitalization)
  Sender: FDA-Public Use
  Company Number: None

PATIENT
  Age: 26 Year
  Sex: Male
  Weight: 90 kg

DRUGS (1)
  1. OXALIPLATIN [Suspect]
     Active Substance: OXALIPLATIN
     Dosage: FREQUENCY : EVERY 4 HOURS;?
     Route: 042
     Dates: start: 20240401, end: 20240409

REACTIONS (1)
  - Respiratory distress [None]

NARRATIVE: CASE EVENT DATE: 20240408
